FAERS Safety Report 9214591 (Version 2)
Quarter: 2013Q2

REPORT INFORMATION
  Report Type: Report from Study
  Country: JP (occurrence: JP)
  Receive Date: 20130405
  Receipt Date: 20130415
  Transmission Date: 20140414
  Serious: Yes (Hospitalization)
  Sender: FDA-Public Use
  Company Number: JP-ASTRAZENECA-2013SE20174

PATIENT
  Age: 28370 Day
  Sex: Female

DRUGS (10)
  1. AZD6140 [Suspect]
     Indication: CORONARY ARTERY DISEASE
     Route: 048
     Dates: start: 20111111, end: 20130321
  2. BAYASPIRIN [Suspect]
     Route: 048
     Dates: end: 20130321
  3. GANATON [Concomitant]
     Indication: GASTRITIS PROPHYLAXIS
     Route: 048
     Dates: start: 20121020
  4. ZETIA [Concomitant]
     Indication: HYPERCHOLESTEROLAEMIA
     Route: 048
  5. MOHRUS TAPE L [Concomitant]
     Indication: BACK PAIN
     Route: 003
  6. ARTIST [Concomitant]
     Indication: HYPERTENSION
     Route: 048
  7. ONEALFA [Concomitant]
     Indication: OSTEOPOROSIS
     Route: 048
     Dates: start: 20121020
  8. TSUMURA SHAKUYAKUKANNZOUTOU EXTRACT [Concomitant]
     Indication: NEUROPATHY PERIPHERAL
     Route: 048
     Dates: start: 20121020
  9. BONALON [Concomitant]
     Indication: OSTEOPOROSIS
     Route: 048
     Dates: start: 20121020
  10. MECOBALAMIN [Concomitant]
     Indication: NEUROPATHY PERIPHERAL
     Route: 048

REACTIONS (1)
  - Colon cancer [Not Recovered/Not Resolved]
